FAERS Safety Report 5911871-1 (Version None)
Quarter: 2008Q4

REPORT INFORMATION
  Report Type: 
  Country: None (occurrence: None)
  Receive Date: 20081006
  Receipt Date: 20080918
  Transmission Date: 20090506
  Serious: Yes (Congenital Anomaly)
  Sender: FDA-Public Use
  Company Number: ADE2008-0317

PATIENT
  Age: 24 Week

DRUGS (6)
  1. CITALOPRAM HYDROBROMIDE [Suspect]
     Indication: DEPRESSION
     Dosage: 10MG TRANSPLACENT
     Route: 064
     Dates: end: 20080101
  2. CLOTRIMAZOLE [Concomitant]
  3. ACETAMINOPHEN W/ CODEINE [Concomitant]
  4. IBUPROFEN TABLETS [Concomitant]
  5. POTASSIUM BICARBONATE [Concomitant]
  6. SODIUM ALGINATE [Concomitant]

REACTIONS (3)
  - ABORTION INDUCED [None]
  - MATERNAL DRUGS AFFECTING FOETUS [None]
  - MULTIPLE CONGENITAL ABNORMALITIES [None]
